FAERS Safety Report 9408136 (Version 4)
Quarter: 2013Q4

REPORT INFORMATION
  Report Type: Report from Study
  Country: US (occurrence: US)
  Receive Date: 20130718
  Receipt Date: 20131004
  Transmission Date: 20140711
  Serious: Yes (Hospitalization)
  Sender: FDA-Public Use
  Company Number: US-ALEXION-A201301619

PATIENT
  Age: 24 Year
  Sex: Female
  Weight: 106 kg

DRUGS (6)
  1. ECULIZUMAB [Suspect]
     Indication: HAEMOLYTIC URAEMIC SYNDROME
     Dosage: 900 MG, QW
     Route: 042
  2. ECULIZUMAB [Suspect]
     Dosage: 1200 MG, Q2W
     Route: 042
  3. CIPRO [Concomitant]
     Indication: URINARY TRACT INFECTION
     Dosage: 500 MG, Q12H FOR 3 DAYS
     Route: 048
  4. PROTONIX [Concomitant]
     Indication: GASTRITIS
     Dosage: 40 MG, BID
     Route: 048
  5. CINACALCET [Concomitant]
     Indication: HYPERCALCAEMIA
     Dosage: 90 MG, QD
     Route: 048
  6. CLONIDINE [Concomitant]
     Indication: HYPERTENSION
     Dosage: 0.3 MG, Q8H
     Route: 048

REACTIONS (2)
  - Oesophageal candidiasis [Recovered/Resolved]
  - Urinary tract infection [Recovered/Resolved]
